FAERS Safety Report 6964641-X (Version None)
Quarter: 2010Q3

REPORT INFORMATION
  Report Type: 
  Country: None (occurrence: None)
  Receive Date: 20100903
  Receipt Date: 20100823
  Transmission Date: 20110219
  Serious: Yes (Other)
  Sender: FDA-Public Use
  Company Number: US-ENDO PHARMACEUTICALS INC.-OPER20100147

PATIENT
  Sex: Male

DRUGS (3)
  1. OPANA ER [Suspect]
     Indication: PRODUCT USED FOR UNKNOWN INDICATION
     Dosage: 10 MG
     Route: 048
     Dates: start: 20100708, end: 20100808
  2. DURAGESIC-100 [Concomitant]
     Indication: BACK PAIN
     Dosage: 100 MCG
  3. DURAGESIC-100 [Concomitant]
     Dosage: 25 MCG

REACTIONS (1)
  - DRUG DISPENSING ERROR [None]
